FAERS Safety Report 5904122-5 (Version None)
Quarter: 2008Q3

REPORT INFORMATION
  Report Type: 
  Country: None (occurrence: None)
  Receive Date: 20080919
  Receipt Date: 20080613
  Transmission Date: 20090109
  Serious: Yes (Other)
  Sender: FDA-Public Use
  Company Number: US-WYE-H04536708

PATIENT

DRUGS (2)
  1. PRISTIQ [Suspect]
     Indication: MAJOR DEPRESSION
     Dosage: 50 MG (FREQUENCY UNKNOWN), ORAL
     Route: 048
  2. CITALOPRAM HYDROBROMIDE [Concomitant]

REACTIONS (2)
  - CONFUSIONAL STATE [None]
  - DISORIENTATION [None]
